FAERS Safety Report 23880870 (Version 2)
Quarter: 2024Q2

REPORT INFORMATION
  Report Type: Spontaneous
  Country: FR (occurrence: FR)
  Receive Date: 20240521
  Receipt Date: 20240531
  Transmission Date: 20240715
  Serious: Yes (Hospitalization)
  Sender: FDA-Public Use
  Company Number: None

PATIENT
  Age: 72 Year
  Sex: Male
  Weight: 62 kg

DRUGS (2)
  1. KEYTRUDA [Suspect]
     Active Substance: PEMBROLIZUMAB
     Indication: Oesophageal squamous cell carcinoma
     Dosage: 400 MILLIGRAM, EVERY 6 WEEKS
     Route: 042
     Dates: start: 20230222
  2. LEVOLEUCOVORIN DISODIUM [Suspect]
     Active Substance: LEVOLEUCOVORIN DISODIUM
     Indication: Oesophageal squamous cell carcinoma
     Dosage: 200 MILLIGRAM/SQ. METER, EVERY 14 DAYS (QOW)
     Route: 042
     Dates: start: 20230222

REACTIONS (1)
  - Urticaria [Recovered/Resolved]

NARRATIVE: CASE EVENT DATE: 20240430
